FAERS Safety Report 20609481 (Version 1)
Quarter: 2022Q1

REPORT INFORMATION
  Report Type: Spontaneous
  Country: US (occurrence: US)
  Receive Date: 20220318
  Receipt Date: 20220318
  Transmission Date: 20220423
  Serious: Yes (Other)
  Sender: FDA-Public Use
  Company Number: US-CELLTRION INC.-2022US002984

PATIENT

DRUGS (1)
  1. TRUXIMA [Suspect]
     Active Substance: RITUXIMAB-ABBS
     Indication: Hodgkin^s disease lymphocyte predominance type stage unspecified
     Dosage: 375 MG/M2 ONCE WEEKLY FOR 4 WEEKS
     Dates: start: 20220309

REACTIONS (2)
  - Hodgkin^s disease lymphocyte predominance type stage unspecified [Unknown]
  - Off label use [Unknown]

NARRATIVE: CASE EVENT DATE: 20220309
